FAERS Safety Report 14757530 (Version 1)
Quarter: 2018Q2

REPORT INFORMATION
  Report Type: Spontaneous
  Country: US (occurrence: US)
  Receive Date: 20180413
  Receipt Date: 20180413
  Transmission Date: 20180711
  Serious: Yes (Other)
  Sender: FDA-Public Use
  Company Number: US-LUNDBECK-DKLU2047022

PATIENT
  Age: 62 Year
  Sex: Female

DRUGS (2)
  1. NORTHERA [Suspect]
     Active Substance: DROXIDOPA
     Indication: AUTONOMIC NEUROPATHY
     Route: 048
     Dates: start: 20170329
  2. GABAPENTIN. [Suspect]
     Active Substance: GABAPENTIN
     Indication: PRODUCT USED FOR UNKNOWN INDICATION
     Route: 065

REACTIONS (8)
  - Seizure [Unknown]
  - Asthenia [Unknown]
  - Pyrexia [Unknown]
  - Fall [Unknown]
  - Ligament sprain [Unknown]
  - Gait disturbance [Unknown]
  - Blood pressure increased [Unknown]
  - Gait inability [Unknown]

NARRATIVE: CASE EVENT DATE: 20180404
